FAERS Safety Report 8613643-6 (Version None)
Quarter: 2012Q3

REPORT INFORMATION
  Report Type: 
  Country: None (occurrence: None)
  Receive Date: 20120823
  Receipt Date: 20120814
  Transmission Date: 20120928
  Serious: Yes (Other)
  Sender: FDA-Public Use
  Company Number: AR-AMGEN-ARGSP2012050399

PATIENT
  Age: 56 Year
  Sex: Female

DRUGS (7)
  1. FOXETIN [Concomitant]
     Dosage: UNK
  2. DICLOFENAC SODIUM [Concomitant]
     Dosage: UNK
  3. HYDROCORTISON                      /00028601/ [Concomitant]
     Dosage: UNK
  4. FOLIC ACID [Concomitant]
     Dosage: UNK
  5. CALCIUM [Concomitant]
     Dosage: UNK
  6. ENBREL [Suspect]
     Indication: RHEUMATOID ARTHRITIS
     Dosage: 50 MG, WEEKLY
     Route: 058
     Dates: start: 20110328
  7. ALPLAX [Concomitant]
     Dosage: UNK

REACTIONS (3)
  - DIARRHOEA [None]
  - APHAGIA [None]
  - RHEUMATOID ARTHRITIS [None]
